FAERS Safety Report 5338402-1 (Version None)
Quarter: 2007Q2

REPORT INFORMATION
  Report Type: 
  Country: None (occurrence: None)
  Receive Date: 20070405
  Receipt Date: 20061113
  Transmission Date: 20071010
  Serious: No
  Sender: FDA-Public Use
  Company Number: US200611002805

PATIENT
  Sex: Female

DRUGS (2)
  1. CYMBALTA [Suspect]
     Dosage: 30 MG, DAILY (1/D), ORAL
     Route: 048
     Dates: start: 20061110, end: 20061101
  2. EFFEXOR [Concomitant]

REACTIONS (2)
  - BLOOD PRESSURE MANAGEMENT [None]
  - HOT FLUSH [None]
